FAERS Safety Report 4865086-9 (Version None)
Quarter: 2005Q4

REPORT INFORMATION
  Report Type: 
  Country: None (occurrence: None)
  Receive Date: 20051223
  Receipt Date: 20050126
  Transmission Date: 20060501
  Serious: Yes (Other)
  Sender: FDA-Public Use
  Company Number: 2005AP00593

PATIENT
  Age: 19678 Day
  Sex: Female

DRUGS (4)
  1. PLACEBO [Suspect]
     Indication: PROPHYLAXIS
     Route: 048
     Dates: start: 20041110, end: 20041218
  2. ASPIRIN [Concomitant]
  3. DILTIAZEM HCL [Concomitant]
     Indication: HYPERTENSION
  4. FLUOXETINE [Concomitant]

REACTIONS (1)
  - PSORIASIS [None]
